FAERS Safety Report 4319296-X (Version None)
Quarter: 2004Q1

REPORT INFORMATION
  Report Type: 
  Country: None (occurrence: None)
  Receive Date: 20040316
  Receipt Date: 20040304
  Transmission Date: 20041129
  Serious: Yes (Other)
  Sender: FDA-Public Use
  Company Number: GBWYE626508MAR04

PATIENT
  Age: 37 Year
  Sex: Female

DRUGS (5)
  1. LEVONORGESTREL [Suspect]
     Dosage: TAKEN REGULARLY OVER SEVEN YEARS
     Route: 048
  2. ZYBAN [Suspect]
     Indication: EX-SMOKER
     Dosage: 150MG
     Route: 048
     Dates: start: 20040112
  3. SERTRALINE (SERTRALINE) [Concomitant]
  4. KAPAKE (CODEINE PHOSPHATE / PARACETAMOL) [Concomitant]
  5. IBUPROFEN [Concomitant]

REACTIONS (5)
  - COMPLICATIONS OF MATERNAL EXPOSURE TO THERAPEUTIC DRUGS [None]
  - DRUG INEFFECTIVE [None]
  - DRUG INTERACTION [None]
  - PREGNANCY ON ORAL CONTRACEPTIVE [None]
  - UNINTENDED PREGNANCY [None]
